FAERS Safety Report 10626149 (Version 1)
Quarter: 2014Q4

REPORT INFORMATION
  Report Type: Spontaneous
  Country: US (occurrence: None)
  Receive Date: 20141202
  Receipt Date: 20141202
  Transmission Date: 20150529
  Serious: Yes (Other)
  Sender: FDA-Public Use
  Company Number: BB14-424-AE

PATIENT
  Age: 8 Year
  Sex: Female
  Weight: 28.58 kg

DRUGS (2)
  1. CHEWABLE VITAMINS [Concomitant]
  2. OXCARBAZEPINE. [Suspect]
     Active Substance: OXCARBAZEPINE
     Indication: SEIZURE
     Route: 048
     Dates: start: 201311

REACTIONS (11)
  - Eructation [None]
  - Seizure [None]
  - Drug ineffective [None]
  - Gait disturbance [None]
  - Abasia [None]
  - Anticonvulsant drug level decreased [None]
  - Nausea [None]
  - Hiccups [None]
  - Urinary incontinence [None]
  - Muscular weakness [None]
  - Infantile spitting up [None]

NARRATIVE: CASE EVENT DATE: 20141005
